FAERS Safety Report 9415799 (Version 1)
Quarter: 2013Q3

REPORT INFORMATION
  Report Type: Spontaneous
  Country: GB (occurrence: GB)
  Receive Date: 20130724
  Receipt Date: 20130724
  Transmission Date: 20140515
  Serious: Yes (Death, Hospitalization)
  Sender: FDA-Public Use
  Company Number: GB-AMGEN-KDC409475

PATIENT
  Age: 62 Year
  Sex: Male

DRUGS (15)
  1. PANITUMUMAB [Suspect]
     Indication: ADENOCARCINOMA GASTRIC
     Dosage: 9 MG/KG, UNK
     Route: 042
     Dates: start: 20091130, end: 20100222
  2. EPIRUBICIN [Suspect]
     Indication: ADENOCARCINOMA GASTRIC
     Dosage: 50 MG/M2, UNK
     Route: 042
     Dates: start: 20091130, end: 20100222
  3. OXALIPLATIN [Suspect]
     Indication: ADENOCARCINOMA GASTRIC
     Dosage: 100 MG/M2, UNK
     Route: 042
     Dates: start: 20091130, end: 20100222
  4. CAPECITABINE [Suspect]
     Indication: ADENOCARCINOMA GASTRIC
     Dosage: 1000 MG/M2, QD
     Route: 048
     Dates: start: 20091130, end: 20100223
  5. OMEPRAZOLE [Concomitant]
     Dosage: 20 MG, QD
  6. FINASTERIDE [Concomitant]
     Dosage: 5 MG, QD
  7. TAMSULOSIN [Concomitant]
     Dosage: UNK UNK, QD
  8. DEXAMETHASONE [Concomitant]
     Dosage: UNK
     Dates: start: 20091127
  9. METOCLOPRAMIDE [Concomitant]
     Dosage: UNK UNK, AS NECESSARY
     Dates: start: 20091127
  10. ONDANSETRON [Concomitant]
     Dosage: UNK UNK, QD
     Dates: start: 20091127
  11. DOXYCYCLINE [Concomitant]
     Dosage: 100 MG, QD
     Dates: start: 20100201
  12. CINCHOCAINE HYDROCHLORIDE, ESCULOSIDE, FRAMYCETIN SULFATE, HCA [Concomitant]
     Dosage: UNK UNK, BID
     Dates: start: 20100202
  13. BENZYDAMINE HYDROCHLORIDE [Concomitant]
     Dosage: UNK UNK, AS NECESSARY
     Dates: start: 20100111
  14. DICLOFENAC [Concomitant]
     Dosage: 500 MG, TID
     Dates: start: 20100222
  15. PANADEINE CO [Concomitant]
     Dosage: 30/550
     Dates: start: 20100222

REACTIONS (3)
  - Upper gastrointestinal haemorrhage [Fatal]
  - Cerebrovascular accident [Not Recovered/Not Resolved]
  - Drug interaction [Unknown]
